FAERS Safety Report 5502331-0 (Version None)
Quarter: 2007Q4

REPORT INFORMATION
  Report Type: 
  Country: None (occurrence: None)
  Receive Date: 20071030
  Receipt Date: 20071017
  Transmission Date: 20080405
  Serious: Yes (Other)
  Sender: FDA-Public Use
  Company Number: US-SHR-US-2007-039414

PATIENT

DRUGS (1)
  1. BETASERON [Suspect]

REACTIONS (2)
  - GLIOBLASTOMA MULTIFORME [None]
  - HAEMORRHAGE INTRACRANIAL [None]
